FAERS Safety Report 13643031 (Version 3)
Quarter: 2017Q3

REPORT INFORMATION
  Report Type: Spontaneous
  Country: US (occurrence: US)
  Receive Date: 20170612
  Receipt Date: 20170809
  Transmission Date: 20171127
  Serious: Yes (Other)
  Sender: FDA-Public Use
  Company Number: US-AMGEN-USASP2017080698

PATIENT
  Age: 77 Year
  Sex: Female
  Weight: 61.22 kg

DRUGS (1)
  1. PROLIA [Suspect]
     Active Substance: DENOSUMAB
     Indication: OSTEOPOROSIS POSTMENOPAUSAL
     Dosage: UNK
     Route: 065
     Dates: start: 20170510

REACTIONS (9)
  - Abdominal distension [Unknown]
  - Dyspnoea exertional [Unknown]
  - Fracture [Unknown]
  - Muscular weakness [Unknown]
  - Spinal fracture [Unknown]
  - Dysphonia [Unknown]
  - Throat tightness [Unknown]
  - Gastrooesophageal reflux disease [Unknown]
  - Arthralgia [Not Recovered/Not Resolved]

NARRATIVE: CASE EVENT DATE: 2017
